FAERS Safety Report 5777788-0 (Version None)
Quarter: 2008Q2

REPORT INFORMATION
  Report Type: 
  Country: None (occurrence: None)
  Receive Date: 20080618
  Receipt Date: 20080610
  Transmission Date: 20081010
  Serious: Yes (Death, Hospitalization)
  Sender: FDA-Public Use
  Company Number: NL-PFIZER INC-2008049537

PATIENT
  Age: 20 Year
  Sex: Female

DRUGS (4)
  1. GENOTROPIN [Suspect]
     Indication: HYPOPITUITARISM
     Dosage: DAILY DOSE:.6MG
     Route: 058
     Dates: start: 20000613, end: 20030624
  2. HYDROCORTISONE [Concomitant]
     Dosage: DAILY DOSE:60MG
     Route: 048
  3. LEVOTHYROXINE SODIUM [Concomitant]
     Dosage: DAILY DOSE:125MG
     Route: 048
  4. ESTRADIOL [Concomitant]
     Dosage: DAILY DOSE:2MG
     Route: 048

REACTIONS (2)
  - ASTROCYTOMA [None]
  - NEOPLASM RECURRENCE [None]
